FAERS Safety Report 7797443-5 (Version None)
Quarter: 2011Q4

REPORT INFORMATION
  Report Type: 
  Country: None (occurrence: None)
  Receive Date: 20111005
  Receipt Date: 20110929
  Transmission Date: 20120403
  Serious: Yes (Other)
  Sender: FDA-Public Use
  Company Number: US-PFIZER INC-2011234189

PATIENT
  Sex: Female
  Weight: 80.272 kg

DRUGS (2)
  1. LISINOPRIL [Concomitant]
     Indication: HYPERTENSION
     Dosage: 20 MG, UNK
  2. BEXTRA [Suspect]
     Indication: BACK DISORDER
     Dosage: UNK
     Route: 048
     Dates: start: 19970101

REACTIONS (4)
  - PNEUMONIA [None]
  - WRONG TECHNIQUE IN DRUG USAGE PROCESS [None]
  - EXPIRED DRUG ADMINISTERED [None]
  - PAIN IN EXTREMITY [None]
